FAERS Safety Report 10206613 (Version 1)
Quarter: 2014Q2

REPORT INFORMATION
  Report Type: Spontaneous
  Country: US (occurrence: US)
  Receive Date: 20140530
  Receipt Date: 20140530
  Transmission Date: 20141212
  Serious: No
  Sender: FDA-Public Use
  Company Number: US-GLAXOSMITHKLINE-A1065884A

PATIENT
  Age: 65 Year
  Sex: Female

DRUGS (2)
  1. FLOLAN [Suspect]
     Indication: COR PULMONALE CHRONIC
     Dosage: 28NGKM CONTINUOUS
     Route: 042
     Dates: start: 20130403
  2. ADCIRCA [Concomitant]

REACTIONS (2)
  - Herpes zoster [Unknown]
  - Upper respiratory tract infection [Unknown]
